FAERS Safety Report 8508062-7 (Version None)
Quarter: 2012Q3

REPORT INFORMATION
  Report Type: 
  Country: None (occurrence: None)
  Receive Date: 20120713
  Receipt Date: 20120710
  Transmission Date: 20120928
  Serious: Yes (Hospitalization)
  Sender: FDA-Public Use
  Company Number: JP-009507513-1207JPN001492

PATIENT

DRUGS (6)
  1. TELAPREVIR [Suspect]
     Route: 048
     Dates: start: 20120605, end: 20120615
  2. REBETOL [Suspect]
     Indication: HEPATITIS C
     Route: 048
     Dates: start: 20120518, end: 20120622
  3. TELAPREVIR [Suspect]
     Indication: HEPATITIS C
     Route: 048
     Dates: start: 20120518, end: 20120523
  4. ALLOPURINOL [Concomitant]
     Indication: BLOOD URIC ACID INCREASED
     Route: 048
     Dates: start: 20120525, end: 20120528
  5. TELAPREVIR [Suspect]
     Route: 048
     Dates: start: 20120524, end: 20120604
  6. PEG-INTRON [Suspect]
     Indication: HEPATITIS C
     Dosage: 1.5MCG/KG/WEEK
     Route: 058
     Dates: start: 20120518, end: 20120615

REACTIONS (1)
  - BLOOD CREATININE INCREASED [None]
